FAERS Safety Report 5124580-6 (Version None)
Quarter: 2006Q3

REPORT INFORMATION
  Report Type: 
  Country: None (occurrence: None)
  Receive Date: 20060822
  Receipt Date: 20060504
  Transmission Date: 20061208
  Serious: No
  Sender: FDA-Public Use
  Company Number: PHEH2006US05884

PATIENT
  Age: 55 Year
  Sex: Female

DRUGS (8)
  1. ENABLEX [Suspect]
     Indication: HYPERTONIC BLADDER
     Dosage: 7.5 MG, QD, ORAL
     Route: 048
     Dates: start: 20060426, end: 20060428
  2. FLEXERIL [Concomitant]
  3. LAMICTAL [Concomitant]
  4. TRAMADOL HCL [Concomitant]
  5. CYMBALTA [Concomitant]
  6. LYRICA [Concomitant]
  7. ALTACE [Concomitant]
  8. FAMOTIDINE [Concomitant]

REACTIONS (6)
  - CONDITION AGGRAVATED [None]
  - DYSKINESIA [None]
  - INJURY [None]
  - THERMAL BURN [None]
  - TREMOR [None]
  - URINARY INCONTINENCE [None]
